FAERS Safety Report 6385445-5 (Version None)
Quarter: 2009Q4

REPORT INFORMATION
  Report Type: 
  Country: None (occurrence: None)
  Receive Date: 20091002
  Receipt Date: 20080825
  Transmission Date: 20100525
  Serious: No
  Sender: FDA-Public Use
  Company Number: US-ASTRAZENECA-2008UW17333

PATIENT
  Age: 68 Year
  Sex: Female
  Weight: 76.2 kg

DRUGS (4)
  1. ARIMIDEX [Suspect]
     Indication: BREAST CANCER STAGE I
     Route: 048
     Dates: start: 20080817
  2. FLOVENT [Concomitant]
  3. COMBIVENT [Concomitant]
  4. PROAIR HFA [Concomitant]

REACTIONS (3)
  - CHEST PAIN [None]
  - DYSPNOEA [None]
  - PALPITATIONS [None]
